FAERS Safety Report 7943771-X (Version None)
Quarter: 2011Q4

REPORT INFORMATION
  Report Type: 
  Country: None (occurrence: None)
  Receive Date: 20111128
  Receipt Date: 20111123
  Transmission Date: 20120403
  Serious: Yes (Death)
  Sender: FDA-Public Use
  Company Number: CN-ROCHE-1016038

PATIENT

DRUGS (3)
  1. ZENAPAX [Suspect]
     Indication: LIVER TRANSPLANT
  2. MYCOPHENOLATE MOFETIL (CELLCEPT) [Suspect]
     Indication: LIVER TRANSPLANT
  3. METHYLPREDNISOLONE [Concomitant]
     Indication: LIVER TRANSPLANT

REACTIONS (1)
  - SEPSIS [None]
